FAERS Safety Report 8183444-4 (Version None)
Quarter: 2012Q1

REPORT INFORMATION
  Report Type: 
  Country: None (occurrence: None)
  Receive Date: 20120130
  Receipt Date: 20101215
  Transmission Date: 20120608
  Serious: Yes (Other)
  Sender: FDA-Public Use
  Company Number: 023455

PATIENT
  Age: 77 Year
  Sex: Female

DRUGS (11)
  1. HYDROCODONE BITARTRATE [Concomitant]
  2. PROMETHAZINE [Concomitant]
  3. AMIODARONE HCL [Concomitant]
  4. HYDROCHLOROTHIAZIDE [Concomitant]
  5. MAGNESIUM OXIDE [Concomitant]
  6. TRAMADOL HCL [Concomitant]
  7. OS-CAL /00108001/ [Concomitant]
  8. CLONAZEPAM [Concomitant]
  9. OMEPRAZOLE [Concomitant]
  10. KEPPRA [Suspect]
     Indication: CONVULSION
     Dosage: (1000 MG BID, 500 MG TABLETS (2 IN THE AM AND 2 IN THE PM))
     Dates: start: 20041201
  11. POTASSIUM [Concomitant]

REACTIONS (3)
  - BRAIN NEOPLASM BENIGN [None]
  - OSTEOPOROSIS [None]
  - COLON CANCER [None]
